FAERS Safety Report 12186401 (Version 1)
Quarter: 2016Q1

REPORT INFORMATION
  Report Type: Spontaneous
  Country: PR (occurrence: PR)
  Receive Date: 20160317
  Receipt Date: 20160317
  Transmission Date: 20160526
  Serious: Yes (Other)
  Sender: FDA-Public Use
  Company Number: PR-FRESENIUS KABI-FK201601287

PATIENT
  Age: 81 Year
  Sex: Female
  Weight: 59.02 kg

DRUGS (3)
  1. CARBOPLATIN (MANUFACTURER UNKNOWN) [Suspect]
     Active Substance: CARBOPLATIN
     Indication: OVARIAN CANCER
     Route: 042
     Dates: start: 20150902, end: 20160204
  2. EMEND [Concomitant]
     Active Substance: APREPITANT
     Route: 042
     Dates: start: 20150902, end: 20160204
  3. DOCETAXEL. [Concomitant]
     Active Substance: DOCETAXEL
     Indication: OVARIAN CANCER
     Route: 042
     Dates: start: 20150902, end: 20160204

REACTIONS (6)
  - Anxiety [Unknown]
  - Vomiting [Unknown]
  - Tremor [Unknown]
  - Pruritus [Unknown]
  - Nausea [Unknown]
  - Erythema [Unknown]

NARRATIVE: CASE EVENT DATE: 20160112
